FAERS Safety Report 23009599 (Version 4)
Quarter: 2023Q4

REPORT INFORMATION
  Report Type: Report from Study
  Country: US (occurrence: US)
  Receive Date: 20230929
  Receipt Date: 20231106
  Transmission Date: 20240109
  Serious: Yes (Hospitalization, Other)
  Sender: FDA-Public Use
  Company Number: US-002147023-NVSC2023US205851

PATIENT
  Sex: Female

DRUGS (3)
  1. PROMACTA [Suspect]
     Active Substance: ELTROMBOPAG OLAMINE
     Indication: Immune thrombocytopenia
     Dosage: UNK UNK, QD
     Route: 048
     Dates: start: 202308, end: 202309
  2. PROMACTA [Suspect]
     Active Substance: ELTROMBOPAG OLAMINE
     Dosage: 50 MG, QD
     Route: 048
     Dates: end: 20231020
  3. PROMACTA [Suspect]
     Active Substance: ELTROMBOPAG OLAMINE
     Dosage: 25 MG, QD
     Route: 048

REACTIONS (8)
  - Hyponatraemia [Unknown]
  - Cataract [Not Recovered/Not Resolved]
  - Visual impairment [Not Recovered/Not Resolved]
  - Ill-defined disorder [Unknown]
  - Platelet count increased [Unknown]
  - Product storage error [Unknown]
  - Platelet count decreased [Unknown]
  - Peripheral swelling [Unknown]
